FAERS Safety Report 9815582 (Version 1)
Quarter: 2014Q1

REPORT INFORMATION
  Report Type: Spontaneous
  Country: US (occurrence: US)
  Receive Date: 20140114
  Receipt Date: 20140114
  Transmission Date: 20141002
  Serious: Yes (Hospitalization)
  Sender: FDA-Public Use
  Company Number: US-BAYER-2014-004556

PATIENT
  Age: 45 Year
  Sex: Female
  Weight: 65.76 kg

DRUGS (4)
  1. YAZ [Suspect]
     Indication: MENSTRUAL CYCLE MANAGEMENT
  2. MOTRIN [Concomitant]
     Dosage: 600 MG, UNK
     Dates: start: 20080203
  3. MORPHINE [Concomitant]
     Indication: PAIN MANAGEMENT
  4. DILAUDID [Concomitant]

REACTIONS (1)
  - Pulmonary embolism [None]
